FAERS Safety Report 5138103-9 (Version None)
Quarter: 2006Q4

REPORT INFORMATION
  Report Type: 
  Country: None (occurrence: None)
  Receive Date: 20061030
  Receipt Date: 20060410
  Transmission Date: 20070319
  Serious: No
  Sender: FDA-Public Use
  Company Number: US-GLAXOSMITHKLINE-A0601867A

PATIENT
  Age: 48 Year
  Sex: Female
  Weight: 89.1 kg

DRUGS (6)
  1. ADVAIR DISKUS 100/50 [Suspect]
     Indication: ASTHMA
     Route: 055
  2. ALBUTEROL [Concomitant]
     Indication: ASTHMA
     Route: 055
  3. SINGULAIR [Concomitant]
     Indication: ASTHMA
     Dosage: 10MG PER DAY
     Route: 048
  4. NASONEX [Concomitant]
     Dosage: 2PUFF TWICE PER DAY
     Route: 045
  5. CELEBREX [Concomitant]
     Indication: INFLAMMATION
     Dosage: 200MG PER DAY
     Route: 048
  6. PRILOSEC [Concomitant]
     Dosage: 1CAP PER DAY
     Route: 048

REACTIONS (1)
  - ORAL CANDIDIASIS [None]
